FAERS Safety Report 8903186 (Version 1)
Quarter: 2012Q4

REPORT INFORMATION
  Report Type: 
  Country: NL (occurrence: NL)
  Receive Date: 20121112
  Receipt Date: 20121112
  Transmission Date: 20130627
  Serious: Yes (Hospitalization)
  Sender: FDA-Public Use
  Company Number: NL-NOVOPROD-363086

PATIENT
  Age: 53 Year
  Sex: Female
  Weight: 70 kg

DRUGS (2)
  1. VICTOZA [Suspect]
     Indication: DIABETES MELLITUS
     Dosage: 1.8 mg, single
     Route: 058
     Dates: start: 2011, end: 20121015
  2. METFORMIN [Concomitant]
     Indication: DIABETES MELLITUS
     Dosage: 1000 mg, tid
     Route: 048
     Dates: start: 1990

REACTIONS (6)
  - Abnormal behaviour [Unknown]
  - Paresis [Unknown]
  - Weight decreased [Unknown]
  - Eosinophilia [Unknown]
  - Change of bowel habit [Unknown]
  - Nausea [Unknown]
